FAERS Safety Report 7597132-6 (Version None)
Quarter: 2011Q3

REPORT INFORMATION
  Report Type: 
  Country: None (occurrence: None)
  Receive Date: 20110708
  Receipt Date: 20110628
  Transmission Date: 20111222
  Serious: Yes (Death, Other)
  Sender: FDA-Public Use
  Company Number: DE-ACTELION-A-CH2011-51082

PATIENT
  Weight: 3.2 kg

DRUGS (1)
  1. VENTAVIS [Suspect]
     Indication: PULMONARY ARTERIAL HYPERTENSION
     Dosage: UNK ?G, UNK
     Route: 055

REACTIONS (4)
  - HYPERTENSIVE CRISIS [None]
  - PNEUMONIA [None]
  - C-REACTIVE PROTEIN INCREASED [None]
  - BACTERIAL INFECTION [None]
